FAERS Safety Report 8180062-9 (Version None)
Quarter: 2012Q1

REPORT INFORMATION
  Report Type: 
  Country: None (occurrence: None)
  Receive Date: 20120302
  Receipt Date: 20120302
  Transmission Date: 20120608
  Serious: No
  Sender: FDA-Public Use
  Company Number: None

PATIENT
  Age: 38 Year
  Sex: Female
  Weight: 50.802 kg

DRUGS (1)
  1. MUCINEX DM [Suspect]
     Indication: COUGH
     Dosage: 1PILL
     Route: 048
     Dates: start: 20120129, end: 20120129

REACTIONS (13)
  - NAUSEA [None]
  - DYSPNOEA [None]
  - PRESYNCOPE [None]
  - DIZZINESS [None]
  - PALPITATIONS [None]
  - FALL [None]
  - IMPAIRED WORK ABILITY [None]
  - DIARRHOEA [None]
  - HEADACHE [None]
  - COLD SWEAT [None]
  - MUSCULAR WEAKNESS [None]
  - LOSS OF CONSCIOUSNESS [None]
  - DISTURBANCE IN ATTENTION [None]
